FAERS Safety Report 18032347 (Version 2)
Quarter: 2020Q3

REPORT INFORMATION
  Report Type: Spontaneous
  Country: US (occurrence: US)
  Receive Date: 20200716
  Receipt Date: 20200717
  Transmission Date: 20201103
  Serious: Yes (Hospitalization)
  Sender: FDA-Public Use
  Company Number: US-BAYER-2019-067380

PATIENT
  Age: 63 Year
  Sex: Female

DRUGS (6)
  1. ALEVE [Suspect]
     Active Substance: NAPROXEN SODIUM
     Indication: ARTHRALGIA
     Route: 065
     Dates: end: 20150818
  2. XARELTO [Suspect]
     Active Substance: RIVAROXABAN
     Indication: ATRIAL FIBRILLATION
     Dosage: 20 MG, QD
     Route: 048
     Dates: start: 20150821, end: 201509
  3. NABUMETONE. [Suspect]
     Active Substance: NABUMETONE
     Indication: ARTHRALGIA
     Dosage: 750 MG, BID
     Route: 048
     Dates: end: 20150818
  4. XARELTO [Suspect]
     Active Substance: RIVAROXABAN
     Indication: CEREBROVASCULAR ACCIDENT PROPHYLAXIS
     Dosage: 20 MG, QD
     Route: 048
     Dates: start: 201406, end: 20150818
  5. ASPIRIN (CARDIO) [Suspect]
     Active Substance: ASPIRIN
     Indication: ATRIAL FIBRILLATION
     Dosage: 325 MG, QD
     Dates: end: 20150818
  6. ALEVE [Suspect]
     Active Substance: NAPROXEN SODIUM
     Indication: BACK PAIN
     Dosage: UNK

REACTIONS (2)
  - Haematemesis [Recovered/Resolved]
  - Peptic ulcer haemorrhage [Recovered/Resolved]

NARRATIVE: CASE EVENT DATE: 20150815
